FAERS Safety Report 23079968 (Version 3)
Quarter: 2024Q3

REPORT INFORMATION
  Report Type: Spontaneous
  Country: US (occurrence: US)
  Receive Date: 20231018
  Receipt Date: 20240810
  Transmission Date: 20241017
  Serious: No
  Sender: SANOFI AVENTIS
  Company Number: US-SA-SAC20231013000474

PATIENT
  Age: 61 Year
  Sex: Female
  Weight: 65.7 kg

DRUGS (8)
  1. DUPIXENT [Suspect]
     Active Substance: DUPILUMAB
     Indication: Dermatitis atopic
     Dosage: 300 MG, QOW
     Route: 058
     Dates: start: 202005
  2. DUPIXENT [Suspect]
     Active Substance: DUPILUMAB
     Indication: Dermatitis atopic
     Dosage: 300 MG, QOW
     Route: 058
     Dates: start: 202005
  3. CYCLOSPORINE [Concomitant]
     Active Substance: CYCLOSPORINE
     Dosage: UNK
  4. CYCLOSPORINE [Concomitant]
     Active Substance: CYCLOSPORINE
  5. LATANOPROST [Concomitant]
     Active Substance: LATANOPROST
     Dosage: UNK
  6. LATANOPROST [Concomitant]
     Active Substance: LATANOPROST
  7. ROGAINE [Concomitant]
     Active Substance: MINOXIDIL
     Dosage: UNK
  8. ROGAINE [Concomitant]
     Active Substance: MINOXIDIL

REACTIONS (9)
  - Skin hyperpigmentation [Recovered/Resolved]
  - Facial pain [Recovered/Resolved]
  - Rash macular [Recovered/Resolved]
  - White blood cell count decreased [Unknown]
  - Pain of skin [Recovered/Resolved]
  - Dermatitis atopic [Unknown]
  - Pruritus [Unknown]
  - Skin exfoliation [Unknown]
  - Dry eye [Not Recovered/Not Resolved]

NARRATIVE: CASE EVENT DATE: 20230601
